FAERS Safety Report 26039601 (Version 1)
Quarter: 2025Q4

REPORT INFORMATION
  Report Type: Spontaneous
  Country: EU (occurrence: EU)
  Receive Date: 20251113
  Receipt Date: 20251113
  Transmission Date: 20260117
  Serious: Yes (Other)
  Sender: AUROBINDO
  Company Number: EU-AFSSAPS-MP2025001252

PATIENT
  Age: 92 Year
  Sex: Male
  Weight: 45 kg

DRUGS (1)
  1. ALFUZOSIN HYDROCHLORIDE [Suspect]
     Active Substance: ALFUZOSIN HYDROCHLORIDE
     Indication: Benign prostatic hyperplasia
     Dosage: 10 GRAM, ONCE A DAY
     Route: 048
     Dates: start: 20250904, end: 20250905

REACTIONS (2)
  - Altered state of consciousness [Recovered/Resolved]
  - Hypotension [Recovered/Resolved]

NARRATIVE: CASE EVENT DATE: 20250904
